FAERS Safety Report 5087390-4 (Version None)
Quarter: 2006Q3

REPORT INFORMATION
  Report Type: 
  Country: None (occurrence: None)
  Receive Date: 20060727
  Receipt Date: 20060331
  Transmission Date: 20061208
  Serious: Yes (Other)
  Sender: FDA-Public Use
  Company Number: 2006046357

PATIENT
  Age: 52 Year
  Sex: Female
  Weight: 49.8957 kg

DRUGS (6)
  1. LYRICA [Suspect]
     Indication: PAIN
     Dosage: 50 MG (50 MG, 1 IN 1 D)
     Dates: start: 20060301
  2. SYNTHROID [Concomitant]
  3. OXYCONTIN [Concomitant]
  4. NORCO [Concomitant]
  5. REGLAN [Concomitant]
  6. KLONOPIN [Concomitant]

REACTIONS (1)
  - ABDOMINAL PAIN UPPER [None]
